FAERS Safety Report 6567168-2 (Version None)
Quarter: 2010Q1

REPORT INFORMATION
  Report Type: 
  Country: None (occurrence: None)
  Receive Date: 20100202
  Receipt Date: 20100122
  Transmission Date: 20100710
  Serious: Yes (Other)
  Sender: FDA-Public Use
  Company Number: TH-PFIZER INC-2010009962

PATIENT
  Age: 2 Month
  Sex: Male

DRUGS (3)
  1. ALPROSTADIL [Suspect]
     Indication: HEART DISEASE CONGENITAL
     Dosage: 0.1 UG/KG PER MINUTE
  2. ALPROSTADIL [Suspect]
     Dosage: 0.01 UG/KG PER MINUTE
  3. ALPROSTADIL [Suspect]
     Dosage: 0.05 UG/KG PER MINUTE

REACTIONS (2)
  - EXOSTOSIS [None]
  - PNEUMONIA [None]
